FAERS Safety Report 12700266 (Version 1)
Quarter: 2016Q3

REPORT INFORMATION
  Report Type: Spontaneous
  Country: US (occurrence: US)
  Receive Date: 20160830
  Receipt Date: 20160830
  Transmission Date: 20161109
  Serious: No
  Sender: FDA-Public Use
  Company Number: US-SA-2015SA127057

PATIENT
  Age: 62 Year
  Sex: Female
  Weight: 93.89 kg

DRUGS (27)
  1. FABRAZYME [Suspect]
     Active Substance: AGALSIDASE BETA
     Indication: LIPIDOSIS
     Route: 042
  2. SODIUM CHLORIDE. [Concomitant]
     Active Substance: SODIUM CHLORIDE
     Indication: FLUSHING
     Dosage: 1-50 ML AS DIRECTED
     Dates: start: 20150529
  3. METOPROLOL. [Concomitant]
     Active Substance: METOPROLOL
     Dates: start: 20150312
  4. DIPHENHYDRAMINE. [Concomitant]
     Active Substance: DIPHENHYDRAMINE
     Indication: ANAPHYLACTIC REACTION
     Dates: start: 20150529
  5. EPIPEN [Concomitant]
     Active Substance: EPINEPHRINE
     Indication: ANAPHYLACTIC REACTION
     Dates: start: 20150529
  6. KLONOPIN [Concomitant]
     Active Substance: CLONAZEPAM
     Dates: start: 20150312
  7. BUSPIRONE [Concomitant]
     Active Substance: BUSPIRONE HYDROCHLORIDE
     Dates: start: 20150312
  8. SEROQUEL [Concomitant]
     Active Substance: QUETIAPINE FUMARATE
     Dates: start: 20150312
  9. TACROLIMUS. [Concomitant]
     Active Substance: TACROLIMUS
     Dates: start: 20150312
  10. FABRAZYME [Suspect]
     Active Substance: AGALSIDASE BETA
     Indication: ILL-DEFINED DISORDER
     Route: 042
  11. FABRAZYME [Suspect]
     Active Substance: AGALSIDASE BETA
     Indication: ILL-DEFINED DISORDER
     Route: 042
  12. FLUOXETINE [Concomitant]
     Active Substance: FLUOXETINE HYDROCHLORIDE
     Dates: start: 20150312
  13. CRESTOR [Concomitant]
     Active Substance: ROSUVASTATIN CALCIUM
     Dates: start: 20150312
  14. MYCOPHENOLATE MOFETIL. [Concomitant]
     Active Substance: MYCOPHENOLATE MOFETIL
     Dates: start: 20150312
  15. ASPIRIN. [Concomitant]
     Active Substance: ASPIRIN
     Dates: start: 20150312
  16. FABRAZYME [Suspect]
     Active Substance: AGALSIDASE BETA
     Indication: LIPIDOSIS
     Route: 042
  17. CALCIUM CARBONATE. [Concomitant]
     Active Substance: CALCIUM CARBONATE
     Dates: start: 20150312
  18. FUROSEMIDE. [Concomitant]
     Active Substance: FUROSEMIDE
     Dates: start: 20150312
  19. FERROUS SULFATE. [Concomitant]
     Active Substance: FERROUS SULFATE
     Dates: start: 20150312
  20. NIFEDIPINE. [Concomitant]
     Active Substance: NIFEDIPINE
     Dates: start: 20150312
  21. PANTHENOL/RETINOL/THIAMINE HYDROCHLORIDE/ASCORBIC ACID/ERGOCALCIFEROL/FOLIC ACID/RIBOFLAVIN/NICOTINA [Concomitant]
     Dates: start: 20150312
  22. NORMAL SALINE [Concomitant]
     Active Substance: SODIUM CHLORIDE
     Indication: MEDICATION DILUTION
     Dosage: 0.9% AS DIRECTED
     Dates: start: 20150529
  23. PREDNISONE. [Concomitant]
     Active Substance: PREDNISONE
     Dates: start: 20150312
  24. LANTUS [Concomitant]
     Active Substance: INSULIN GLARGINE
     Dosage: DOSE:20 UNIT(S)
     Dates: start: 20150312
  25. LISINOPRIL. [Concomitant]
     Active Substance: LISINOPRIL
     Dates: start: 20150312
  26. HUMALOG [Concomitant]
     Active Substance: INSULIN LISPRO
     Dosage: DOSE:10 UNIT(S)
     Dates: start: 20150312
  27. VENLAFAXINE [Concomitant]
     Active Substance: VENLAFAXINE HYDROCHLORIDE
     Dates: start: 20150312

REACTIONS (4)
  - Diarrhoea [Unknown]
  - Fatigue [Unknown]
  - Sinus headache [Unknown]
  - Decreased appetite [Unknown]
